FAERS Safety Report 9190047 (Version 2)
Quarter: 2013Q2

REPORT INFORMATION
  Report Type: Spontaneous
  Country: US (occurrence: None)
  Receive Date: 20120703
  Receipt Date: 20121031
  Transmission Date: 20140414
  Serious: No
  Sender: FDA-Public Use
  Company Number: PHEH2012US009996

PATIENT
  Age: 33 Year
  Sex: Female

DRUGS (9)
  1. GILENYA [Suspect]
     Indication: MULTIPLE SCLEROSIS
     Route: 048
     Dates: start: 20120503
  2. ZANTAC [Concomitant]
  3. ALBUTEROL [Concomitant]
  4. CELEXA [Concomitant]
  5. BENADRYL [Concomitant]
  6. VICODIN [Concomitant]
  7. CLONAZEPAM [Concomitant]
  8. PRILOSEC [Concomitant]
  9. ONDANSETRON [Concomitant]

REACTIONS (2)
  - Wheezing [None]
  - Dyspnoea [None]
